FAERS Safety Report 9022166 (Version 2)
Quarter: 2013Q1

REPORT INFORMATION
  Report Type: Spontaneous
  Country: FR (occurrence: FR)
  Receive Date: 20130118
  Receipt Date: 20130329
  Transmission Date: 20140127
  Serious: Yes (Hospitalization)
  Sender: FDA-Public Use
  Company Number: FR-ASTRAZENECA-2013SE02460

PATIENT
  Age: 28060 Day
  Sex: Male

DRUGS (10)
  1. BRILIQUE [Suspect]
     Route: 048
     Dates: start: 20121114, end: 20121217
  2. BRILIQUE [Suspect]
     Route: 048
  3. KARDEGIC [Suspect]
     Route: 048
     Dates: start: 20121114
  4. KARDEGIC [Suspect]
     Route: 048
  5. PREVISCAN [Suspect]
     Route: 048
     Dates: start: 20121116, end: 20121217
  6. CRESTOR [Concomitant]
     Route: 048
  7. EUPANTOL [Concomitant]
  8. TRIATEC [Concomitant]
  9. CARDENSIEL [Concomitant]
  10. BURINEX [Concomitant]

REACTIONS (3)
  - Fall [Unknown]
  - Subdural haematoma [Recovered/Resolved]
  - Subarachnoid haemorrhage [Recovered/Resolved]
